FAERS Safety Report 16796320 (Version 2)
Quarter: 2019Q3

REPORT INFORMATION
  Report Type: Spontaneous
  Country: BR (occurrence: BR)
  Receive Date: 20190911
  Receipt Date: 20190924
  Transmission Date: 20191005
  Serious: Yes (Other)
  Sender: FDA-Public Use
  Company Number: BR-GLAXOSMITHKLINE-BR2019GSK008721

PATIENT
  Sex: Male
  Weight: 85 kg

DRUGS (1)
  1. NUCALA [Suspect]
     Active Substance: MEPOLIZUMAB
     Indication: ASTHMA
     Dosage: 100 MG, UNK
     Dates: start: 20181205

REACTIONS (7)
  - Fatigue [Not Recovered/Not Resolved]
  - Dyspnoea [Not Recovered/Not Resolved]
  - Drug dependence [Unknown]
  - Asthma [Not Recovered/Not Resolved]
  - Product dose omission [Not Recovered/Not Resolved]
  - Dark circles under eyes [Unknown]
  - Asthmatic crisis [Not Recovered/Not Resolved]
